FAERS Safety Report 5038224-5 (Version None)
Quarter: 2006Q2

REPORT INFORMATION
  Report Type: 
  Country: None (occurrence: None)
  Receive Date: 20060629
  Receipt Date: 20060427
  Transmission Date: 20061013
  Serious: Yes (Hospitalization)
  Sender: FDA-Public Use
  Company Number: JP-SP-2006-01586

PATIENT
  Age: 71 Year
  Sex: Male

DRUGS (4)
  1. IMMUCYST [Suspect]
     Indication: BLADDER CANCER
     Route: 043
     Dates: start: 20050808, end: 20060130
  2. TAMSULOSIN HYDROCHLORIDE (HARNAL D) [Concomitant]
     Dates: start: 20051114
  3. MAGNESIUM OXIDE (MAGMITT) [Concomitant]
     Dates: start: 20060220
  4. RILMAZOFONE HYDROCHLORIDE (RHYTHMY) [Concomitant]
     Dates: start: 20050726

REACTIONS (6)
  - BLADDER TAMPONADE [None]
  - DYSURIA [None]
  - HAEMATURIA [None]
  - HAEMORRHAGE URINARY TRACT [None]
  - POLLAKIURIA [None]
  - URINARY RETENTION [None]
